FAERS Safety Report 15345813 (Version 4)
Quarter: 2018Q4

REPORT INFORMATION
  Report Type: Report from Study
  Country: FR (occurrence: FR)
  Receive Date: 20180904
  Receipt Date: 20181204
  Transmission Date: 20190204
  Serious: Yes (Death, Other)
  Sender: FDA-Public Use
  Company Number: FR-BRISTOL-MYERS SQUIBB COMPANY-BMS-2018-069293

PATIENT
  Age: 62 Year
  Sex: Male

DRUGS (1)
  1. NIVOLUMAB [Suspect]
     Active Substance: NIVOLUMAB
     Indication: RENAL CANCER METASTATIC
     Dosage: 480 MG, (J1-J28)
     Route: 042
     Dates: start: 20180618

REACTIONS (7)
  - Malignant neoplasm progression [Unknown]
  - Nausea [Recovered/Resolved]
  - Ascites [Fatal]
  - Renal failure [Fatal]
  - Hyperkalaemia [Fatal]
  - Metastases to peritoneum [Unknown]
  - Septic shock [Fatal]

NARRATIVE: CASE EVENT DATE: 20180622
